FAERS Safety Report 9242400 (Version 1)
Quarter: 2013Q2

REPORT INFORMATION
  Report Type: Spontaneous
  Country: FR (occurrence: FR)
  Receive Date: 20130419
  Receipt Date: 20130419
  Transmission Date: 20140414
  Serious: Yes (Life-Threatening, Other)
  Sender: FDA-Public Use
  Company Number: FR-ASTRAZENECA-2013SE25752

PATIENT
  Age: 2 Month
  Sex: Female
  Weight: 2 kg

DRUGS (7)
  1. SYNAGIS [Suspect]
     Indication: PROPHYLAXIS
     Route: 030
     Dates: start: 20130108
  2. FERROUS FUMARATE [Concomitant]
     Route: 042
     Dates: start: 20121130
  3. CALCIUM FOLINATE [Concomitant]
     Dates: start: 20121121
  4. VITAMIN A [Concomitant]
     Dates: start: 20121121
  5. VITAMIN D [Concomitant]
     Dates: start: 20121121
  6. VITAMIN E [Concomitant]
     Dates: start: 20121121
  7. VITAMIN C [Concomitant]
     Dates: start: 20121121

REACTIONS (3)
  - Bradycardia [Recovered/Resolved]
  - Asthenia [Recovered/Resolved]
  - Apparent life threatening event [Recovered/Resolved]
